FAERS Safety Report 5234330-0 (Version None)
Quarter: 2007Q1

REPORT INFORMATION
  Report Type: 
  Country: None (occurrence: None)
  Receive Date: 20070207
  Receipt Date: 20070125
  Transmission Date: 20070707
  Serious: Yes (Other)
  Sender: FDA-Public Use
  Company Number: 1022556-2007-00023

PATIENT
  Sex: Male

DRUGS (1)
  1. UNISOM [Suspect]
     Indication: SLEEP DISORDER
     Dates: start: 20070125

REACTIONS (2)
  - AGITATION [None]
  - HEART RATE INCREASED [None]
